FAERS Safety Report 5407131-8 (Version None)
Quarter: 2007Q3

REPORT INFORMATION
  Report Type: 
  Country: None (occurrence: None)
  Receive Date: 20070803
  Receipt Date: 20070803
  Transmission Date: 20080115
  Serious: No
  Sender: FDA-Public Use
  Company Number: None

PATIENT
  Age: 61 Year
  Sex: Female
  Weight: 53.0709 kg

DRUGS (1)
  1. SYSTANE EYE DROPS ALCON [Suspect]
     Indication: DRY EYE
     Dosage: 1 DROP IN EYE 4 TIMES A DAY
     Dates: start: 20070729, end: 20070729

REACTIONS (2)
  - EYE INFECTION [None]
  - EYE PAIN [None]
